FAERS Safety Report 14826773 (Version 6)
Quarter: 2018Q2

REPORT INFORMATION
  Report Type: Spontaneous
  Country: PT (occurrence: PT)
  Receive Date: 20180430
  Receipt Date: 20180618
  Transmission Date: 20180711
  Serious: Yes (Hospitalization, Other)
  Sender: FDA-Public Use
  Company Number: PT-AUROBINDO-AUR-APL-2018-022629

PATIENT
  Age: 57 Year
  Sex: Male

DRUGS (16)
  1. REMIFENTANIL POWDER FOR CONCENTRATE FOR SOLUTION FOR INFUSION [Suspect]
     Active Substance: REMIFENTANIL
     Indication: ANAESTHESIA
     Dosage: 0.2 MICROGRAM
     Route: 042
  2. PROPOFOL. [Suspect]
     Active Substance: PROPOFOL
     Indication: ANAESTHESIA
     Dosage: 200 MILLIGRAM, UNK
     Route: 065
  3. DROPERIDOL. [Suspect]
     Active Substance: DROPERIDOL
     Indication: PRODUCT USED FOR UNKNOWN INDICATION
     Dosage: 1.25 MILLIGRAM, Z
     Route: 065
  4. PROPOFOL. [Suspect]
     Active Substance: PROPOFOL
     Dosage: 200 MG, UNK
     Route: 065
  5. METOCLOPRAMIDE 10 MG [Suspect]
     Active Substance: METOCLOPRAMIDE
     Indication: PRODUCT USED FOR UNKNOWN INDICATION
     Dosage: 10 MILLIGRAM, UNK
     Route: 065
  6. RANITIDINE. [Suspect]
     Active Substance: RANITIDINE
     Indication: PRODUCT USED FOR UNKNOWN INDICATION
     Dosage: 50 MILLIGRAM, UNK
     Route: 065
  7. ERYTHROMYCIN. [Suspect]
     Active Substance: ERYTHROMYCIN
     Indication: PRODUCT USED FOR UNKNOWN INDICATION
     Dosage: 1000 MG, UNK
     Route: 065
  8. ISOSORBID DINITRATE [Suspect]
     Active Substance: ISOSORBIDE DINITRATE
     Dosage: UNK UNK, Z (1-2 MG/H) ()
     Route: 042
  9. SUGAMMADEX [Suspect]
     Active Substance: SUGAMMADEX
     Indication: PRODUCT USED FOR UNKNOWN INDICATION
     Dosage: 200 MILLIGRAM
  10. REMIFENTANIL POWDER FOR CONCENTRATE FOR SOLUTION FOR INFUSION [Suspect]
     Active Substance: REMIFENTANIL
     Dosage: 100 MICROGRAM
     Route: 042
  11. PARACETAMOL [Suspect]
     Active Substance: ACETAMINOPHEN
     Indication: PRODUCT USED FOR UNKNOWN INDICATION
     Dosage: 1000 MILLIGRAM, UNK
     Route: 065
  12. MIDAZOLAM [Suspect]
     Active Substance: MIDAZOLAM HYDROCHLORIDE
     Indication: PRODUCT USED FOR UNKNOWN INDICATION
     Dosage: 2 MILLIGRAM, UNK
     Route: 065
  13. PROPOFOL. [Suspect]
     Active Substance: PROPOFOL
     Dosage: 100 UG, UNK,PERFUSION 100-200 MCG/KG/MIN
     Route: 042
  14. ISOSORBID DINITRATE [Suspect]
     Active Substance: ISOSORBIDE DINITRATE
     Indication: PRODUCT USED FOR UNKNOWN INDICATION
     Dosage: 1-2 MG/H
     Route: 042
  15. ROCURONIUM [Suspect]
     Active Substance: ROCURONIUM BROMIDE
     Indication: ANAESTHESIA
     Dosage: 50 MILLIGRAM, UNK
     Route: 065
  16. SUGAMMADEX [Suspect]
     Active Substance: SUGAMMADEX
     Dosage: 200 MG, WE
     Route: 065

REACTIONS (7)
  - Anaphylactic reaction [Recovered/Resolved]
  - Kounis syndrome [Recovered/Resolved]
  - Tachycardia [Recovered/Resolved]
  - Epistaxis [Recovered/Resolved]
  - Hyperhidrosis [Recovered/Resolved]
  - Malaise [Recovered/Resolved]
  - Hypertension [Recovered/Resolved]
